FAERS Safety Report 4828014-8 (Version None)
Quarter: 2005Q4

REPORT INFORMATION
  Report Type: 
  Country: None (occurrence: None)
  Receive Date: 20051115
  Receipt Date: 20051101
  Transmission Date: 20060501
  Serious: Yes (Other)
  Sender: FDA-Public Use
  Company Number: 2005UW16570

PATIENT
  Age: 24761 Day
  Sex: Female
  Weight: 61 kg

DRUGS (4)
  1. FASLODEX [Suspect]
     Route: 030
  2. IRESSA [Suspect]
     Route: 048
  3. CELEXA [Concomitant]
  4. MULTI-VITAMIN [Concomitant]

REACTIONS (2)
  - FALL [None]
  - PUBIC RAMI FRACTURE [None]
